FAERS Safety Report 10509974 (Version 1)
Quarter: 2014Q4

REPORT INFORMATION
  Report Type: Spontaneous
  Country: US (occurrence: US)
  Receive Date: 20141010
  Receipt Date: 20141010
  Transmission Date: 20150528
  Serious: No
  Sender: FDA-Public Use
  Company Number: US-009507513-1409USA003601

PATIENT
  Sex: Male

DRUGS (1)
  1. PROPECIA [Suspect]
     Active Substance: FINASTERIDE
     Dosage: 1 UNIT OF USE BOTTLE OF 30
     Route: 048

REACTIONS (4)
  - Product tampering [Unknown]
  - Suspected counterfeit product [Unknown]
  - No adverse event [Unknown]
  - Counterfeit drug administered [Unknown]
